FAERS Safety Report 5594454-5 (Version None)
Quarter: 2008Q1

REPORT INFORMATION
  Report Type: 
  Country: None (occurrence: None)
  Receive Date: 20080117
  Receipt Date: 20080103
  Transmission Date: 20080703
  Serious: Yes (Hospitalization)
  Sender: FDA-Public Use
  Company Number: GB-RANBAXY-2008RR-12391

PATIENT

DRUGS (3)
  1. GABAPENTIN BASICS B 600MG FILMTABLETTEN [Suspect]
     Indication: PAIN
     Dosage: 300 MG, UNK
  2. LYRICA [Suspect]
     Indication: PAIN
     Dosage: 25 MG, UNK
     Route: 048
  3. LYRICA [Suspect]
     Dosage: 50 MG, UNK

REACTIONS (3)
  - DRUG INEFFECTIVE [None]
  - NAUSEA [None]
  - RENAL DISORDER [None]
